FAERS Safety Report 6300919-0 (Version None)
Quarter: 2009Q3

REPORT INFORMATION
  Report Type: 
  Country: None (occurrence: None)
  Receive Date: 20090807
  Receipt Date: 20090730
  Transmission Date: 20100115
  Serious: Yes (Other)
  Sender: FDA-Public Use
  Company Number: JP-JNJFOC-20081206408

PATIENT
  Age: 28 Year
  Sex: Female

DRUGS (1)
  1. ORTHO-NOVUM 1/35-21 [Suspect]
     Indication: ENDOMETRIOSIS
     Route: 048

REACTIONS (2)
  - DEAFNESS NEUROSENSORY [None]
  - OFF LABEL USE [None]
